FAERS Safety Report 6660214-7 (Version None)
Quarter: 2010Q1

REPORT INFORMATION
  Report Type: 
  Country: None (occurrence: None)
  Receive Date: 20100331
  Receipt Date: 20100225
  Transmission Date: 20100710
  Serious: No
  Sender: FDA-Public Use
  Company Number: 2009BI028617

PATIENT
  Age: 38 Year
  Sex: Female

DRUGS (3)
  1. TYSABRI [Suspect]
     Indication: MULTIPLE SCLEROSIS
     Route: 042
     Dates: start: 20080129
  2. AVONEX [Concomitant]
     Indication: MULTIPLE SCLEROSIS
     Route: 030
     Dates: start: 20040520, end: 20050412
  3. AVONEX [Concomitant]
     Route: 030
     Dates: start: 20070601

REACTIONS (3)
  - OVARIAN CYST [None]
  - TENDON CALCIFICATION [None]
  - UTERINE NEOPLASM [None]
